FAERS Safety Report 10062898 (Version 1)
Quarter: 2014Q2

REPORT INFORMATION
  Report Type: Spontaneous
  Country: US (occurrence: US)
  Receive Date: 20140407
  Receipt Date: 20140407
  Transmission Date: 20141212
  Serious: Yes (Other)
  Sender: FDA-Public Use
  Company Number: PHHY2014US037919

PATIENT
  Age: 57 Year
  Sex: Male

DRUGS (16)
  1. LAMOTRIGINE [Suspect]
     Indication: AFFECTIVE DISORDER
     Dosage: 25 MG, QD
  2. LAMOTRIGINE [Interacting]
     Dosage: 50 MG, QD
  3. LAMOTRIGINE [Interacting]
     Dosage: 100 MG, QD
  4. LAMOTRIGINE [Interacting]
     Dosage: 150 MG, QD
  5. LAMOTRIGINE [Interacting]
     Dosage: 25 MG, QD
  6. CITALOPRAM [Interacting]
     Indication: AFFECTIVE DISORDER
     Dosage: 20 MG, QD
  7. CITALOPRAM [Interacting]
     Dosage: 40 MG, QD
  8. TRAZODONE [Interacting]
     Indication: AFFECTIVE DISORDER
     Dosage: 50 MG, QHS
  9. BUPROPION [Interacting]
     Indication: AFFECTIVE DISORDER
     Dosage: 150 MG, QD
  10. BUPROPION [Interacting]
     Dosage: 300 MG, QD
  11. OMEPRAZOLE [Concomitant]
     Dosage: 20 MG, QD
  12. DOXYCYCLINE [Concomitant]
     Dosage: 100 MG, BID
  13. ALBUTEROL [Concomitant]
  14. IBUPROFEN [Concomitant]
     Indication: PAIN
     Dosage: 600 MG, BID
  15. ACETAMINOPHEN AND CODEINE [Concomitant]
     Indication: PAIN
     Dosage: UNK UKN, UNK
  16. GUAIFENESIN [Concomitant]
     Indication: COUGH
     Dosage: 200 MG, QID

REACTIONS (8)
  - Extrapyramidal disorder [Recovered/Resolved]
  - Dystonia [Recovered/Resolved]
  - Pain in jaw [Recovered/Resolved]
  - Joint stiffness [Recovered/Resolved]
  - Torticollis [Recovered/Resolved]
  - Musculoskeletal stiffness [Recovered/Resolved]
  - Glossodynia [Recovered/Resolved]
  - Drug interaction [Unknown]
